FAERS Safety Report 10005387 (Version 2)
Quarter: 2014Q2

REPORT INFORMATION
  Report Type: Spontaneous
  Country: DK (occurrence: CN)
  Receive Date: 20140312
  Receipt Date: 20140424
  Transmission Date: 20141212
  Serious: Yes (Other)
  Sender: FDA-Public Use
  Company Number: CN-FRI-1000060526

PATIENT
  Age: 43 Year
  Sex: Male

DRUGS (4)
  1. CITALOPRAM [Suspect]
     Indication: ANXIETY
     Dosage: 20 MG
     Route: 048
     Dates: start: 20130226
  2. MIRTAZAPINE [Concomitant]
  3. CLONAZEPAM [Concomitant]
     Dosage: 1 TABLET DAILY
  4. CLOZAPINE [Concomitant]
     Dosage: 0.25 DF

REACTIONS (4)
  - Concussion [Recovering/Resolving]
  - Post concussion syndrome [Recovering/Resolving]
  - Depression [Recovering/Resolving]
  - Neurosis [Recovering/Resolving]
